FAERS Safety Report 5583199-3 (Version None)
Quarter: 2007Q4

REPORT INFORMATION
  Report Type: 
  Country: None (occurrence: None)
  Receive Date: 20071130
  Receipt Date: 20061127
  Transmission Date: 20080405
  Serious: Yes (Disabling)
  Sender: FDA-Public Use
  Company Number: WAES 0611USA07074

PATIENT
  Age: 66 Year
  Sex: Female

DRUGS (10)
  1. FOSAMAX [Suspect]
     Indication: OSTEOPOROSIS
     Dosage: 70 MG/WKY/PO ; 70 MG/WKY/PO
     Route: 048
     Dates: start: 20040101, end: 20060101
  2. FOSAMAX [Suspect]
     Indication: OSTEOPOROSIS
     Dosage: 70 MG/WKY/PO ; 70 MG/WKY/PO
     Route: 048
     Dates: start: 20060101
  3. ADVAIR DISKUS 100/50 [Concomitant]
  4. DARVON [Concomitant]
  5. FLOMAX [Concomitant]
  6. FLONASE [Concomitant]
  7. CLONAZEPAM [Concomitant]
  8. GABAPENTIN [Concomitant]
  9. NUTRITIONAL SUPPLEMENTS [Concomitant]
  10. VITAMINS (UNSPECIFIED) [Concomitant]

REACTIONS (3)
  - BONE PAIN [None]
  - COELIAC DISEASE [None]
  - OSTEOARTHRITIS [None]
